FAERS Safety Report 5166754-4 (Version None)
Quarter: 2006Q4

REPORT INFORMATION
  Report Type: 
  Country: None (occurrence: None)
  Receive Date: 20061129
  Receipt Date: 20061114
  Transmission Date: 20070319
  Serious: Yes (Hospitalization)
  Sender: FDA-Public Use
  Company Number: 232924

PATIENT
  Age: 58 Year
  Sex: Male

DRUGS (4)
  1. AVASTIN [Suspect]
     Indication: COLORECTAL CANCER
     Dosage: 525 MG, Q3W, INTRAVENOUS
     Route: 042
     Dates: start: 20060821
  2. CAPECITABINE (CAPECITABINE) [Suspect]
     Indication: COLORECTAL CANCER
     Dosage: 1500 MG, BID, ORAL
     Route: 048
     Dates: start: 20060821
  3. OXALIPLATIN [Suspect]
     Indication: COLORECTAL CANCER
     Dosage: 180 MG, Q3W, INTRAVENOUS
     Route: 042
     Dates: start: 20060821
  4. LOPERAMIDE [Concomitant]

REACTIONS (6)
  - BLOOD CREATININE ABNORMAL [None]
  - COLITIS ISCHAEMIC [None]
  - COLONIC FISTULA [None]
  - DEHYDRATION [None]
  - DIARRHOEA [None]
  - HYPOKALAEMIA [None]
